FAERS Safety Report 24659968 (Version 1)
Quarter: 2024Q4

REPORT INFORMATION
  Report Type: Other
  Country: US (occurrence: US)
  Receive Date: 20241125
  Receipt Date: 20241125
  Transmission Date: 20250114
  Serious: Yes (Hospitalization, Other)
  Sender: APRECIA PHARMACEUTICALS
  Company Number: US-Aprecia Pharmaceuticals-APRE20241256

PATIENT
  Sex: Male

DRUGS (7)
  1. LEVETIRACETAM [Suspect]
     Active Substance: LEVETIRACETAM
     Indication: Glioblastoma
     Dosage: UNKNOWN
     Route: 065
  2. TEMOZOLOMIDE [Suspect]
     Active Substance: TEMOZOLOMIDE
     Indication: Glioblastoma
     Dosage: UNKNOWN
     Route: 065
  3. LACOSAMIDE [Concomitant]
     Active Substance: LACOSAMIDE
  4. dexamethasone_ [Concomitant]
  5. PANTOPRAZOLE [Concomitant]
     Active Substance: PANTOPRAZOLE
  6. CLONAZEPAM [Concomitant]
     Active Substance: CLONAZEPAM
  7. ACETAMINOPHENE [Concomitant]
     Indication: Headache

REACTIONS (11)
  - Vanishing bile duct syndrome [Not Recovered/Not Resolved]
  - Cholestatic liver injury [Not Recovered/Not Resolved]
  - Drug-induced liver injury [Not Recovered/Not Resolved]
  - Jaundice [Unknown]
  - Chromaturia [Unknown]
  - Faeces pale [Unknown]
  - Hyperbilirubinaemia [Not Recovered/Not Resolved]
  - Hypertransaminasaemia [Not Recovered/Not Resolved]
  - Abnormal loss of weight [Unknown]
  - Hepatomegaly [Unknown]
  - Hepatic function abnormal [Not Recovered/Not Resolved]
